FAERS Safety Report 6988406-8 (Version None)
Quarter: 2010Q3

REPORT INFORMATION
  Report Type: 
  Country: None (occurrence: None)
  Receive Date: 20100916
  Receipt Date: 20100909
  Transmission Date: 20110219
  Serious: Yes (Life-Threatening)
  Sender: FDA-Public Use
  Company Number: JP-SANOFI-AVENTIS-2010SA044314

PATIENT
  Age: 63 Year
  Sex: Male
  Weight: 72 kg

DRUGS (14)
  1. PLAVIX [Suspect]
     Indication: ANGINA UNSTABLE
     Route: 048
     Dates: start: 20080715, end: 20080715
  2. PLAVIX [Suspect]
     Route: 048
     Dates: start: 20080716, end: 20090121
  3. ASPIRIN [Concomitant]
     Route: 048
     Dates: start: 20080715
  4. AMARYL [Concomitant]
     Route: 048
     Dates: end: 20090610
  5. AMARYL [Concomitant]
     Route: 048
     Dates: start: 20081128, end: 20090610
  6. NU-LOTAN [Concomitant]
     Route: 048
     Dates: start: 20080715
  7. CONIEL [Concomitant]
     Route: 048
     Dates: end: 20100722
  8. DOXAZOSIN MESYLATE [Concomitant]
     Route: 048
  9. ZYLORIC ^FRESENIUS^ [Concomitant]
     Route: 048
  10. SIGMART [Concomitant]
     Route: 048
     Dates: start: 20080715
  11. MIGLITOL [Concomitant]
     Route: 048
     Dates: end: 20090610
  12. OMEPRAL [Concomitant]
     Route: 048
  13. FRANDOL [Concomitant]
     Route: 062
     Dates: start: 20080715
  14. LASIX [Concomitant]
     Route: 048
     Dates: start: 20081122, end: 20081128

REACTIONS (1)
  - CORONARY ARTERY RESTENOSIS [None]
